FAERS Safety Report 8520570-1 (Version None)
Quarter: 2012Q3

REPORT INFORMATION
  Report Type: 
  Country: None (occurrence: None)
  Receive Date: 20120719
  Receipt Date: 20120716
  Transmission Date: 20120928
  Serious: Yes (Hospitalization)
  Sender: FDA-Public Use
  Company Number: FR-PFIZER INC-2012170161

PATIENT
  Age: 64 Year
  Sex: Male

DRUGS (23)
  1. ALDACTONE [Suspect]
     Indication: OEDEMA
     Dosage: UNK
     Route: 048
     Dates: start: 20120607, end: 20120608
  2. NEULASTA [Suspect]
     Indication: CHEMOTHERAPY
     Dosage: UNK
     Route: 058
     Dates: start: 20120605, end: 20120605
  3. ARANESP [Suspect]
     Dosage: UNK
     Route: 058
     Dates: start: 20120605
  4. OMEPRAZOLE [Concomitant]
  5. POLYETHYLENE GLYCOL [Concomitant]
  6. ARANESP [Suspect]
     Dosage: 500 UG, SINGLE
     Route: 058
     Dates: start: 20120522
  7. CARBOPLATIN [Suspect]
     Dosage: UNK
     Route: 042
     Dates: start: 20120604
  8. PREDNISONE [Concomitant]
  9. CRESTOR [Concomitant]
  10. ZOFRAN [Concomitant]
     Dosage: 80 MG, UNK
  11. DOCETAXEL [Suspect]
     Indication: CHEMOTHERAPY
     Dosage: 10 MG/ML
     Route: 042
     Dates: start: 20120514
  12. CARBOPLATIN [Suspect]
     Indication: CHEMOTHERAPY
     Dosage: UNK
     Route: 042
     Dates: start: 20120514
  13. PREVISCAN [Concomitant]
  14. BISOPROLOL FUMARATE [Concomitant]
  15. NOROXIN [Concomitant]
  16. LEVOTHYROXINE SODIUM [Concomitant]
     Dosage: 75 UG, UNK
  17. TAZOBACTAM [Concomitant]
  18. AMOXICILLIN [Suspect]
     Dosage: UNK
     Route: 048
     Dates: start: 20120529
  19. PARAFFIN, LIQUID [Concomitant]
  20. VANCOMYCIN [Concomitant]
  21. DOCETAXEL [Suspect]
     Dosage: 10 MG/ML
     Route: 042
     Dates: start: 20120604
  22. FERROUS FUMARATE [Concomitant]
  23. ROCEPHIN [Concomitant]

REACTIONS (6)
  - RASH MACULO-PAPULAR [None]
  - ERYTHEMA [None]
  - ECZEMA [None]
  - DRUG INEFFECTIVE [None]
  - SKIN EXFOLIATION [None]
  - MOUTH ULCERATION [None]
